FAERS Safety Report 7957098-3 (Version None)
Quarter: 2011Q4

REPORT INFORMATION
  Report Type: 
  Country: None (occurrence: None)
  Receive Date: 20111130
  Receipt Date: 20111115
  Transmission Date: 20120403
  Serious: Yes (Hospitalization)
  Sender: FDA-Public Use
  Company Number: GER/GER/11/0021943

PATIENT
  Age: 82 Year
  Sex: Female

DRUGS (1)
  1. IBUBETA 600 (IBUPROFEN) [Suspect]
     Indication: THORACIC VERTEBRAL FRACTURE
     Dosage: 600 MG, THRICE DAILY

REACTIONS (2)
  - NIGHT SWEATS [None]
  - ANAEMIA [None]
